FAERS Safety Report 23179144 (Version 2)
Quarter: 2025Q2

REPORT INFORMATION
  Report Type: Spontaneous
  Country: CN (occurrence: CN)
  Receive Date: 20231113
  Receipt Date: 20250423
  Transmission Date: 20250717
  Serious: Yes (Hospitalization, Disabling)
  Sender: EISAI
  Company Number: CN-Eisai-EC-2023-152273

PATIENT
  Age: 68 Year
  Sex: Female
  Weight: 50 kg

DRUGS (2)
  1. LENVIMA [Suspect]
     Active Substance: LENVATINIB
     Indication: Hepatic cancer metastatic
     Dates: start: 20230701, end: 20231023
  2. LENVIMA [Suspect]
     Active Substance: LENVATINIB

REACTIONS (7)
  - Ocular hyperaemia [Recovering/Resolving]
  - Pyrexia [Recovered/Resolved]
  - Pemphigus [Recovered/Resolved]
  - Initial insomnia [Recovering/Resolving]
  - Eating disorder [Recovering/Resolving]
  - Listless [Recovering/Resolving]
  - Decreased appetite [Recovering/Resolving]

NARRATIVE: CASE EVENT DATE: 20230901
